FAERS Safety Report 13861452 (Version 1)
Quarter: 2017Q3

REPORT INFORMATION
  Report Type: Spontaneous
  Country: FR (occurrence: FR)
  Receive Date: 20170811
  Receipt Date: 20170811
  Transmission Date: 20171127
  Serious: Yes (Congenital Anomaly)
  Sender: FDA-Public Use
  Company Number: FR-SA-2017SA141782

PATIENT
  Age: 1 Day
  Sex: Male
  Weight: 3 kg

DRUGS (2)
  1. AUBAGIO [Suspect]
     Active Substance: TERIFLUNOMIDE
     Indication: EXPOSURE DURING PREGNANCY
     Route: 064
     Dates: end: 201506
  2. QUESTRAN [Suspect]
     Active Substance: CHOLESTYRAMINE
     Indication: EXPOSURE DURING PREGNANCY
     Dosage: FORM OF DRUG- ORAL POWDER IN SACHET
     Route: 064
     Dates: start: 201506, end: 201506

REACTIONS (2)
  - Foetal exposure during pregnancy [Unknown]
  - Talipes [Unknown]

NARRATIVE: CASE EVENT DATE: 20151231
